FAERS Safety Report 20712577 (Version 1)
Quarter: 2022Q2

REPORT INFORMATION
  Report Type: Spontaneous
  Country: FR (occurrence: FR)
  Receive Date: 20220415
  Receipt Date: 20220415
  Transmission Date: 20220721
  Serious: Yes (Hospitalization)
  Sender: FDA-Public Use
  Company Number: None

PATIENT
  Age: 75 Year
  Sex: Female

DRUGS (4)
  1. DULOXETINE HYDROCHLORIDE [Suspect]
     Active Substance: DULOXETINE HYDROCHLORIDE
     Indication: Mixed anxiety and depressive disorder
     Dosage: CHLORHYDRATE DE DULOXETINE, UNIT DOSE: 60 MG, THERAPY START DATE : ASKU, FREQUENCY TIME 1 DAY
     Route: 048
     Dates: end: 20211102
  2. QUETIAPINE [Suspect]
     Active Substance: QUETIAPINE
     Indication: Mixed anxiety and depressive disorder
     Dosage: UNIT DOSE: 50 MG, THERAPY START DATE : ASKU, FREQUENCY TIME 1 DAY
     Route: 048
     Dates: end: 20211108
  3. OXAZEPAM [Suspect]
     Active Substance: OXAZEPAM
     Indication: Mixed anxiety and depressive disorder
     Dosage: FREQUENCY TIME 1 DAY, UNIT DOSE: 20 MG, STRENGTH: 10 MG, THERAPY START DATE : ASKU
     Route: 048
     Dates: end: 20211108
  4. ZUCLOPENTHIXOL [Suspect]
     Active Substance: ZUCLOPENTHIXOL
     Indication: Mixed anxiety and depressive disorder
     Dosage: UNIT DOSE: 6 GTT, STRENGTH: 2 PRESENT, FREQUENCY TIME 1 DAY, DURATION 1 MONTH
     Route: 048
     Dates: start: 202110, end: 20211102

REACTIONS (1)
  - Confusional state [Recovered/Resolved]

NARRATIVE: CASE EVENT DATE: 20211001
